FAERS Safety Report 25739909 (Version 1)
Quarter: 2025Q3

REPORT INFORMATION
  Report Type: Spontaneous
  Country: EU (occurrence: EU)
  Receive Date: 20250829
  Receipt Date: 20250829
  Transmission Date: 20251020
  Serious: Yes (Death)
  Sender: GENMAB
  Company Number: EU-ABBVIE-6434805

PATIENT
  Age: 57 Year
  Sex: Male

DRUGS (3)
  1. EPCORITAMAB [Suspect]
     Active Substance: EPCORITAMAB
     Indication: Lymphoma
     Route: 058
  2. EPCORITAMAB [Suspect]
     Active Substance: EPCORITAMAB
     Route: 058
  3. EPCORITAMAB [Suspect]
     Active Substance: EPCORITAMAB
     Route: 058

REACTIONS (1)
  - Death [Fatal]

NARRATIVE: CASE EVENT DATE: 20250825
